FAERS Safety Report 13331180 (Version 2)
Quarter: 2017Q1

REPORT INFORMATION
  Report Type: Spontaneous
  Country: FR (occurrence: FR)
  Receive Date: 20170314
  Receipt Date: 20170321
  Transmission Date: 20170428
  Serious: Yes (Other)
  Sender: FDA-Public Use
  Company Number: FR-AUROBINDO-AUR-APL-2017-30614

PATIENT
  Age: 36 Year
  Sex: Female

DRUGS (3)
  1. VORICONAZOLE. [Suspect]
     Active Substance: VORICONAZOLE
     Indication: BRONCHOPULMONARY ASPERGILLOSIS
     Dosage: UNK
     Route: 065
     Dates: end: 201508
  2. FLUTICASONE. [Interacting]
     Active Substance: FLUTICASONE
     Indication: ASTHMA
     Route: 065
  3. BUDESONIDE. [Interacting]
     Active Substance: BUDESONIDE
     Indication: ASTHMA
     Route: 065

REACTIONS (5)
  - Asthenia [Unknown]
  - Hypotension [Unknown]
  - Drug interaction [Unknown]
  - Dizziness [Unknown]
  - Adrenal insufficiency [Unknown]
